FAERS Safety Report 15238658 (Version 1)
Quarter: 2018Q3

REPORT INFORMATION
  Report Type: Report from Study
  Country: IT (occurrence: IT)
  Receive Date: 20180803
  Receipt Date: 20180803
  Transmission Date: 20181010
  Serious: Yes (Hospitalization)
  Sender: FDA-Public Use
  Company Number: IT-BAYER-2018-145524

PATIENT
  Age: 75 Year
  Sex: Female

DRUGS (4)
  1. MOBIC [Suspect]
     Active Substance: MELOXICAM
     Indication: PAIN IN EXTREMITY
     Dosage: 2 DF, UNK
     Route: 048
  2. SIMVASTATIN. [Concomitant]
     Active Substance: SIMVASTATIN
     Dosage: UNK
  3. ACETYLSALICYLIC ACID [Suspect]
     Active Substance: ASPIRIN
     Indication: THROMBOSIS PROPHYLAXIS
     Dosage: 100 MG, UNK
     Route: 048
  4. TRIAPIN [Concomitant]
     Active Substance: FELODIPINE\RAMIPRIL
     Dosage: UNK

REACTIONS (4)
  - Rectal haemorrhage [Unknown]
  - Melaena [Unknown]
  - Gastroduodenal ulcer [Unknown]
  - Drug interaction [Unknown]

NARRATIVE: CASE EVENT DATE: 20180521
